FAERS Safety Report 5663814-6 (Version None)
Quarter: 2008Q1

REPORT INFORMATION
  Report Type: 
  Country: None (occurrence: None)
  Receive Date: 20080307
  Receipt Date: 20080303
  Transmission Date: 20080703
  Serious: Yes (Other)
  Sender: FDA-Public Use
  Company Number: 2008005311

PATIENT
  Sex: Female

DRUGS (1)
  1. MINOXIDIL [Suspect]
     Dosage: 50MG (50 MG), TOPICAL
     Route: 061
     Dates: start: 20070801, end: 20080201

REACTIONS (1)
  - AMBLYOPIA [None]
